FAERS Safety Report 5616617-2 (Version None)
Quarter: 2008Q1

REPORT INFORMATION
  Report Type: 
  Country: None (occurrence: None)
  Receive Date: 20080207
  Receipt Date: 20071015
  Transmission Date: 20080703
  Serious: No
  Sender: FDA-Public Use
  Company Number: A0687687A

PATIENT
  Age: 35 Year
  Sex: Male

DRUGS (3)
  1. PAXIL [Suspect]
     Dosage: 25MG PER DAY
     Route: 048
     Dates: start: 20070919
  2. PAXIL [Suspect]
     Dosage: 10MG PER DAY
     Route: 048
     Dates: start: 20070930
  3. NO CONCURRENT MEDICATION [Concomitant]

REACTIONS (7)
  - DIZZINESS [None]
  - FATIGUE [None]
  - FEELING JITTERY [None]
  - HEART RATE INCREASED [None]
  - NAUSEA [None]
  - TREMOR [None]
  - WEIGHT DECREASED [None]
